FAERS Safety Report 10609848 (Version 1)
Quarter: 2014Q4

REPORT INFORMATION
  Report Type: Spontaneous
  Country: US (occurrence: None)
  Receive Date: 20141124
  Receipt Date: 20141124
  Transmission Date: 20150529
  Serious: Yes (Other)
  Sender: FDA-Public Use
  Company Number: 2014-US-005397

PATIENT
  Age: 60 Year
  Sex: Male

DRUGS (2)
  1. XYREM [Suspect]
     Active Substance: SODIUM OXYBATE
     Indication: CATAPLEXY
     Route: 048
     Dates: start: 201010, end: 2010
  2. XYREM [Suspect]
     Active Substance: SODIUM OXYBATE
     Indication: NARCOLEPSY
     Route: 048
     Dates: start: 201010, end: 2010

REACTIONS (7)
  - Osteoarthritis [None]
  - Asthma [None]
  - Polycythaemia [None]
  - Anaemia [None]
  - Coronary artery disease [None]
  - Parasomnia [None]
  - Hyperlipidaemia [None]

NARRATIVE: CASE EVENT DATE: 2010
